FAERS Safety Report 16108362 (Version 3)
Quarter: 2019Q2

REPORT INFORMATION
  Report Type: Spontaneous
  Country: US (occurrence: US)
  Receive Date: 20190323
  Receipt Date: 20190526
  Transmission Date: 20190711
  Serious: Yes (Other)
  Sender: FDA-Public Use
  Company Number: US-009507513-1903USA007093

PATIENT
  Age: 70 Year
  Sex: Female
  Weight: 104.31 kg

DRUGS (5)
  1. SINEMET [Suspect]
     Active Substance: CARBIDOPA\LEVODOPA
     Indication: PARKINSON^S DISEASE
     Dosage: UNK
     Route: 048
     Dates: start: 2017
  2. AMANTADINE. [Concomitant]
     Active Substance: AMANTADINE HYDROCHLORIDE
     Indication: PARKINSON^S DISEASE
     Dosage: 100 (UNITS UNKNOWN), TID
     Dates: start: 2015
  3. MYRBETRIQ [Concomitant]
     Active Substance: MIRABEGRON
     Indication: BLADDER DISORDER
     Dosage: 50 UNITS UNSPECIFIED, QD
     Dates: start: 201809
  4. ISRADIPINE. [Concomitant]
     Active Substance: ISRADIPINE
     Indication: BLOOD PRESSURE MANAGEMENT
     Dosage: 50 (UNITS NOT REPORTED), BID
     Dates: start: 201901
  5. SINEMET [Suspect]
     Active Substance: CARBIDOPA\LEVODOPA
     Dosage: STRENGTH: 25/100 (UNIT UNKNOWN)
     Route: 048
     Dates: start: 20190213

REACTIONS (3)
  - Parkinson^s disease [Not Recovered/Not Resolved]
  - Drug ineffective [Not Recovered/Not Resolved]
  - Therapeutic response shortened [Not Recovered/Not Resolved]

NARRATIVE: CASE EVENT DATE: 201902
